FAERS Safety Report 7483247-X (Version None)
Quarter: 2011Q2

REPORT INFORMATION
  Report Type: 
  Country: None (occurrence: None)
  Receive Date: 20110517
  Receipt Date: 20110506
  Transmission Date: 20111010
  Serious: Yes (Other)
  Sender: FDA-Public Use
  Company Number: BR-AMGEN-BRASP2011024007

PATIENT
  Age: 48 Year
  Sex: Male
  Weight: 70 kg

DRUGS (5)
  1. MELPHALAN HYDROCHLORIDE [Concomitant]
     Indication: RHEUMATOID ARTHRITIS
     Dosage: UNK
     Dates: start: 19960101
  2. OMEPRAZOLE [Concomitant]
     Indication: PROPHYLAXIS
     Dosage: UNK
     Dates: start: 19960101
  3. ENBREL [Suspect]
     Indication: RHEUMATOID ARTHRITIS
     Dosage: UNK, 1X/WEEK
     Route: 058
     Dates: start: 20100901
  4. CHLOROQUINE [Concomitant]
     Indication: RHEUMATOID ARTHRITIS
     Dosage: UNK
     Dates: start: 19960101
  5. ZYRTEC [Concomitant]
     Indication: HYPERSENSITIVITY
     Dosage: UNK

REACTIONS (4)
  - HYPERTENSION [None]
  - HEADACHE [None]
  - DRUG INEFFECTIVE [None]
  - SURGERY [None]
